FAERS Safety Report 4351181-X (Version None)
Quarter: 2004Q2

REPORT INFORMATION
  Report Type: 
  Country: None (occurrence: None)
  Receive Date: 20040428
  Receipt Date: 20031208
  Transmission Date: 20050107
  Serious: Yes (Other)
  Sender: FDA-Public Use
  Company Number: US-JNJFOC-20031201812

PATIENT
  Age: 42 Year
  Sex: Male
  Weight: 68.0396 kg

DRUGS (3)
  1. ULTRAM [Suspect]
     Indication: ARTHRITIS
     Dosage: 30 TO 40 TABLETS DAILY
     Dates: start: 19920101
  2. ULTRAM [Suspect]
     Indication: BACK PAIN
     Dosage: 30 TO 40 TABLETS DAILY
     Dates: start: 19920101
  3. TRAMADOL HCL [Suspect]
     Indication: BACK PAIN
     Dosage: 6 TABLETS Q 1 HOUR
     Dates: start: 20030601

REACTIONS (3)
  - DRUG DEPENDENCE [None]
  - DRUG WITHDRAWAL SYNDROME [None]
  - OVERDOSE [None]
